FAERS Safety Report 5867379-5 (Version None)
Quarter: 2008Q3

REPORT INFORMATION
  Report Type: 
  Country: None (occurrence: None)
  Receive Date: 20080902
  Receipt Date: 20080825
  Transmission Date: 20090109
  Serious: Yes (Other)
  Sender: FDA-Public Use
  Company Number: PHBS2008ES05535

PATIENT
  Sex: Female
  Weight: 2700 kg

DRUGS (1)
  1. DEFEROXAMINE MESYLATE [Suspect]
     Route: 064

REACTIONS (2)
  - DRUG EXPOSURE BEFORE PREGNANCY [None]
  - FOETAL GROWTH RETARDATION [None]
